FAERS Safety Report 16231301 (Version 1)
Quarter: 2019Q2

REPORT INFORMATION
  Report Type: Report from Study
  Country: AT (occurrence: AT)
  Receive Date: 20190424
  Receipt Date: 20190424
  Transmission Date: 20190711
  Serious: Yes (Hospitalization)
  Sender: FDA-Public Use
  Company Number: AT-TEVA-2019-AT-1041452

PATIENT
  Age: 49 Year
  Sex: Female
  Weight: 70 kg

DRUGS (3)
  1. BENEPALI [Suspect]
     Active Substance: ETANERCEPT
     Dosage: 50 MG S.C./WEEK
     Route: 058
     Dates: start: 201901
  2. PROFENID [Suspect]
     Active Substance: KETOPROFEN
     Indication: SPONDYLITIS
     Dosage: 200 MILLIGRAM DAILY;
  3. DULOXETINE HYDROCHLORIDE. [Suspect]
     Active Substance: DULOXETINE HYDROCHLORIDE
     Indication: DEPRESSION
     Dosage: 30 MILLIGRAM DAILY;

REACTIONS (1)
  - Urinary tract infection [Recovered/Resolved]

NARRATIVE: CASE EVENT DATE: 20190201
